FAERS Safety Report 22950280 (Version 3)
Quarter: 2023Q4

REPORT INFORMATION
  Report Type: Spontaneous
  Country: US (occurrence: US)
  Receive Date: 20230915
  Receipt Date: 20231107
  Transmission Date: 20240110
  Serious: Yes (Other)
  Sender: FDA-Public Use
  Company Number: US-GSKCCFUS-Case-01799437_AE-100826

PATIENT

DRUGS (1)
  1. TRELEGY ELLIPTA [Suspect]
     Active Substance: FLUTICASONE FUROATE\UMECLIDINIUM BROMIDE\VILANTEROL TRIFENATATE
     Indication: Product used for unknown indication
     Dosage: UNK, 100/62.5/25 MCG 30D_US
     Route: 055
     Dates: start: 2022

REACTIONS (3)
  - Blood potassium decreased [Not Recovered/Not Resolved]
  - Underdose [Unknown]
  - Product complaint [Unknown]

NARRATIVE: CASE EVENT DATE: 20230530
